FAERS Safety Report 7535802-6 (Version None)
Quarter: 2011Q2

REPORT INFORMATION
  Report Type: 
  Country: None (occurrence: None)
  Receive Date: 20110608
  Receipt Date: 20110608
  Transmission Date: 20111010
  Serious: Yes (Hospitalization)
  Sender: FDA-Public Use
  Company Number: None

PATIENT
  Sex: Male
  Weight: 132.4503 kg

DRUGS (1)
  1. PROVENGE [Suspect]
     Indication: PROSTATE CANCER METASTATIC
     Dosage: 50 MILLION CELLS EVERY 2 WEEKS IV DRIP  2 DOSES
     Route: 041
     Dates: start: 20110519, end: 20110603

REACTIONS (9)
  - TREMOR [None]
  - MOBILITY DECREASED [None]
  - HYPERTENSION [None]
  - OXYGEN SATURATION DECREASED [None]
  - CYANOSIS [None]
  - INFUSION RELATED REACTION [None]
  - CHILLS [None]
  - HEART RATE INCREASED [None]
  - ASTHENIA [None]
